FAERS Safety Report 8036709 (Version 3)
Quarter: 2013Q3

REPORT INFORMATION
  Report Type: Report from Study
  Country: SE (occurrence: SE)
  Receive Date: 20110715
  Receipt Date: 20130718
  Transmission Date: 20140515
  Serious: Yes (Hospitalization)
  Sender: FDA-Public Use
  Company Number: SE-BRISTOL-MYERS SQUIBB COMPANY-15421951

PATIENT
  Age: 63 Year
  Sex: Male

DRUGS (5)
  1. SAXAGLIPTIN [Suspect]
     Indication: TYPE 2 DIABETES MELLITUS
     Dosage: ONGOING
     Dates: start: 20100831
  2. METFORMIN HCL TABS [Suspect]
     Indication: DIABETES MELLITUS
  3. TRIATEC [Suspect]
     Dates: end: 20101110
  4. ASPIRIN [Concomitant]
     Dosage: MORE THAN 100 MG?ALSO TAKEN ={100MG
  5. NITRATES [Concomitant]

REACTIONS (1)
  - Angioedema [Recovered/Resolved]
